FAERS Safety Report 18121340 (Version 1)
Quarter: 2020Q3

REPORT INFORMATION
  Report Type: Spontaneous
  Country: US (occurrence: US)
  Receive Date: 20200806
  Receipt Date: 20200806
  Transmission Date: 20201103
  Serious: Yes (Hospitalization)
  Sender: FDA-Public Use
  Company Number: US-B.I. PHARMACEUTICALS,INC./RIDGEFIELD-2020-BI-040565

PATIENT
  Age: 69 Year
  Sex: Male
  Weight: 141.7 kg

DRUGS (6)
  1. SPIRIVA RESPIMAT [Suspect]
     Active Substance: TIOTROPIUM BROMIDE
     Indication: CHRONIC OBSTRUCTIVE PULMONARY DISEASE
     Dosage: 1 PUFF
     Route: 055
     Dates: start: 20181214
  2. OFEV [Suspect]
     Active Substance: NINTEDANIB
     Indication: HYPERSENSITIVITY PNEUMONITIS
     Route: 048
     Dates: start: 20190712, end: 20200617
  3. VRAYLAR [Suspect]
     Active Substance: CARIPRAZINE
     Indication: CHRONIC OBSTRUCTIVE PULMONARY DISEASE
     Route: 048
     Dates: start: 20200103
  4. BREO ELLIPTA [Suspect]
     Active Substance: FLUTICASONE FUROATE\VILANTEROL TRIFENATATE
     Indication: CHRONIC OBSTRUCTIVE PULMONARY DISEASE
     Dosage: 1 PUFF
     Route: 055
     Dates: start: 200806
  5. VENTOLIN HFA [Suspect]
     Active Substance: ALBUTEROL SULFATE
     Indication: CHRONIC OBSTRUCTIVE PULMONARY DISEASE
     Route: 055
     Dates: start: 201601
  6. VRAYLAR [Suspect]
     Active Substance: CARIPRAZINE
     Indication: HALLUCINATION, VISUAL

REACTIONS (1)
  - Hallucination, visual [Recovered/Resolved]

NARRATIVE: CASE EVENT DATE: 20200617
